FAERS Safety Report 9613660 (Version 1)
Quarter: 2013Q4

REPORT INFORMATION
  Report Type: Spontaneous
  Country: US (occurrence: US)
  Receive Date: 20131010
  Receipt Date: 20131010
  Transmission Date: 20140711
  Serious: No
  Sender: FDA-Public Use
  Company Number: US-PFIZER INC-2013288923

PATIENT
  Sex: Female

DRUGS (1)
  1. CELEBREX [Suspect]
     Dosage: UNK
     Dates: end: 201310

REACTIONS (4)
  - Drug withdrawal syndrome [Unknown]
  - Arthralgia [Unknown]
  - Pain in jaw [Unknown]
  - Facial pain [Unknown]
